FAERS Safety Report 14260015 (Version 2)
Quarter: 2018Q1

REPORT INFORMATION
  Report Type: Spontaneous
  Country: US (occurrence: US)
  Receive Date: 20171207
  Receipt Date: 20180207
  Transmission Date: 20180508
  Serious: No
  Sender: FDA-Public Use
  Company Number: US-VIFOR (INTERNATIONAL) INC.-VIT-2017-00156

PATIENT
  Age: 74 Year
  Sex: Male
  Weight: 72.64 kg

DRUGS (25)
  1. SYSTANE (HYPROMELLOSE 2910 (4000 MPA.S)) [Concomitant]
     Active Substance: HYPROMELLOSE 2910 (4000 MPA.S)
  2. ERGOCALCIFEROL/ASCORBIC ACID/NICOTINAMIDE/RETINOL/RIBOFLAVIN/THIAMINE HYDROCHLORIDE [Concomitant]
  3. MIRALAX [Concomitant]
     Active Substance: POLYETHYLENE GLYCOL 3350
  4. HYDROXYCHLOROQUINE SULFATE. [Concomitant]
     Active Substance: HYDROXYCHLOROQUINE SULFATE
  5. SODIUM BICARBONATE. [Concomitant]
     Active Substance: SODIUM BICARBONATE
  6. CLOBETASOL PROPIONATE. [Concomitant]
     Active Substance: CLOBETASOL PROPIONATE
  7. CALCIUM 500+D3 [Concomitant]
     Active Substance: CALCIUM CARBONATE\CHOLECALCIFEROL
  8. AMLODIPINE BESILATE [Concomitant]
     Active Substance: AMLODIPINE BESYLATE
  9. FERROUS FUMARATE [Concomitant]
     Active Substance: FERROUS FUMARATE
  10. ALLERGY RELIEF [Concomitant]
  11. LASIX [Concomitant]
     Active Substance: FUROSEMIDE
  12. IRON [Concomitant]
     Active Substance: IRON
  13. FAMOTIDINE. [Concomitant]
     Active Substance: FAMOTIDINE
  14. FLONASE [Concomitant]
     Active Substance: FLUTICASONE PROPIONATE
  15. HYDROCHLOROTHIAZIDE/VALSARTAN [Concomitant]
  16. CIPROFLOXACIN HYDROCHLORIDE. [Concomitant]
     Active Substance: CIPROFLOXACIN HYDROCHLORIDE
  17. CLONIDINE HYDROCHLORIDE. [Concomitant]
     Active Substance: CLONIDINE HYDROCHLORIDE
  18. ISONIAZID. [Concomitant]
     Active Substance: ISONIAZID
  19. VELTASSA [Suspect]
     Active Substance: PATIROMER
     Indication: HYPERKALAEMIA
     Route: 048
     Dates: start: 20160930
  20. ACETYLSALICYLIC ACID [Concomitant]
     Active Substance: ASPIRIN
  21. PYRAZINAMIDE. [Concomitant]
     Active Substance: PYRAZINAMIDE
  22. PROCRIT [Concomitant]
     Active Substance: ERYTHROPOIETIN
     Indication: RENAL DISORDER
  23. ETHAMBUTOL DIHYDROCHLORIDE [Concomitant]
     Active Substance: ETHAMBUTOL HYDROCHLORIDE
  24. OMEPRAZOLE. [Concomitant]
     Active Substance: OMEPRAZOLE
  25. PARACETAMOL [Concomitant]
     Active Substance: ACETAMINOPHEN

REACTIONS (4)
  - Dysstasia [Recovered/Resolved]
  - Asthenia [Recovered/Resolved]
  - Gait disturbance [Recovered/Resolved]
  - Peripheral swelling [Not Recovered/Not Resolved]

NARRATIVE: CASE EVENT DATE: 20161103
